FAERS Safety Report 15461630 (Version 1)
Quarter: 2018Q4

REPORT INFORMATION
  Report Type: Spontaneous
  Country: CZ (occurrence: CZ)
  Receive Date: 20181003
  Receipt Date: 20181003
  Transmission Date: 20190204
  Serious: Yes (Hospitalization, Other)
  Sender: FDA-Public Use
  Company Number: CZ-SHIRE-CZ201834796

PATIENT

DRUGS (2)
  1. 476 (MESALAZINE/MESALAMINE) [Suspect]
     Active Substance: MESALAMINE
     Indication: ACUTE HAEMORRHAGIC ULCERATIVE COLITIS
     Dosage: 3.2 G, 1X/DAY:QD
     Route: 065
     Dates: start: 2009
  2. 476 (MESALAZINE/MESALAMINE) [Suspect]
     Active Substance: MESALAMINE
     Dosage: 3.2 G, 1X/DAY:QD
     Route: 065
     Dates: start: 201708

REACTIONS (2)
  - Acute haemorrhagic ulcerative colitis [Recovered/Resolved]
  - Anaemia [Recovered/Resolved]

NARRATIVE: CASE EVENT DATE: 201612
